FAERS Safety Report 15570272 (Version 1)
Quarter: 2018Q4

REPORT INFORMATION
  Report Type: Spontaneous
  Country: US (occurrence: US)
  Receive Date: 20181025
  Receipt Date: 20181025
  Transmission Date: 20190205
  Serious: No
  Sender: FDA-Public Use
  Company Number: None

PATIENT
  Age: 25 Year
  Sex: Female

DRUGS (1)
  1. RASUVO [Suspect]
     Active Substance: METHOTREXATE SODIUM
     Indication: RHEUMATOID ARTHRITIS
     Dosage: ?INJECT 25MG (0.5ML) SUBCUTANEOUSLY ONCE  WEEKLY  ON THE SWAME DAY EACH WEEK AS DIRECTED?
     Route: 058
     Dates: start: 201809

REACTIONS (1)
  - Hand fracture [None]
